FAERS Safety Report 4667513-9 (Version None)
Quarter: 2005Q2

REPORT INFORMATION
  Report Type: 
  Country: None (occurrence: None)
  Receive Date: 20050520
  Receipt Date: 20041116
  Transmission Date: 20051028
  Serious: Yes (Other)
  Sender: FDA-Public Use
  Company Number: PHEH2004US12404

PATIENT
  Age: 59 Year
  Sex: Female
  Weight: 74 kg

DRUGS (3)
  1. ZOMETA [Suspect]
     Indication: METASTASES TO BONE
     Dosage: UNK, UNK
     Route: 042
     Dates: start: 20011120, end: 20040907
  2. TAXOTERE [Concomitant]
  3. XELODA [Concomitant]
     Indication: BREAST CANCER
     Dosage: 3 CAPS Q12H FOR 14 DAYS Q21DAYS
     Dates: start: 20030916

REACTIONS (10)
  - BONE DEBRIDEMENT [None]
  - BONE DISORDER [None]
  - DENTAL OPERATION [None]
  - JAW DISORDER [None]
  - LOCAL SWELLING [None]
  - OSTEOMYELITIS ACUTE [None]
  - OSTEONECROSIS [None]
  - OSTEOTOMY [None]
  - PAIN IN JAW [None]
  - TOOTH EXTRACTION [None]
